FAERS Safety Report 5137071-3 (Version None)
Quarter: 2006Q4

REPORT INFORMATION
  Report Type: 
  Country: None (occurrence: None)
  Receive Date: 20061026
  Receipt Date: 20061026
  Transmission Date: 20070319
  Serious: Yes (Other)
  Sender: FDA-Public Use
  Company Number: None

PATIENT
  Sex: Male
  Weight: 115.2136 kg

DRUGS (2)
  1. OXYCODONE CR  80MG   WATSON LABS [Suspect]
     Indication: PERIPHERAL VASCULAR DISORDER
     Dosage: 80MG  ONE Q 8 HOURS PRN  PO
     Route: 048
     Dates: start: 20060928
  2. OXYCODONE CR  80MG   WATSON LABS [Suspect]
     Indication: SKIN ULCER
     Dosage: 80MG  ONE Q 8 HOURS PRN  PO
     Route: 048
     Dates: start: 20060928

REACTIONS (1)
  - RASH [None]
